FAERS Safety Report 10415079 (Version 2)
Quarter: 2014Q3

REPORT INFORMATION
  Report Type: Report from Study
  Country: US (occurrence: US)
  Receive Date: 20140828
  Receipt Date: 20140902
  Transmission Date: 20150326
  Serious: Yes (Other)
  Sender: FDA-Public Use
  Company Number: US-SA-2014SA116047

PATIENT
  Sex: Female

DRUGS (1)
  1. LANTUS [Suspect]
     Active Substance: INSULIN GLARGINE
     Indication: DIABETES MELLITUS
     Dosage: DOSE:70 UNIT(S)
     Route: 065
     Dates: start: 201206, end: 201407

REACTIONS (4)
  - Drug dose omission [Unknown]
  - Transient ischaemic attack [Unknown]
  - Blood glucose increased [Unknown]
  - Concussion [Unknown]

NARRATIVE: CASE EVENT DATE: 20140223
